FAERS Safety Report 4341898-5 (Version None)
Quarter: 2004Q2

REPORT INFORMATION
  Report Type: 
  Country: None (occurrence: None)
  Receive Date: 20040415
  Receipt Date: 20040331
  Transmission Date: 20050107
  Serious: Yes (Other)
  Sender: FDA-Public Use
  Company Number: USA040463759

PATIENT
  Age: 15 Year
  Sex: Male
  Weight: 62 kg

DRUGS (5)
  1. STRATTERA [Suspect]
     Indication: ATTENTION DEFICIT/HYPERACTIVITY DISORDER
     Dosage: 60 MG DAY
     Dates: start: 20040106
  2. TYLENOL [Concomitant]
  3. IBUPROFEN [Concomitant]
  4. INSULIN [Concomitant]
  5. WELLBUTRIN [Concomitant]

REACTIONS (2)
  - GRAND MAL CONVULSION [None]
  - HYPOGLYCAEMIA [None]
